FAERS Safety Report 5245741-1 (Version None)
Quarter: 2007Q1

REPORT INFORMATION
  Report Type: 
  Country: None (occurrence: None)
  Receive Date: 20070223
  Receipt Date: 20070221
  Transmission Date: 20070707
  Serious: Yes (Other)
  Sender: FDA-Public Use
  Company Number: US-MERCK-0702USA03831

PATIENT
  Age: 75 Year
  Sex: Female
  Weight: 89 kg

DRUGS (10)
  1. FOSAMAX [Suspect]
     Indication: OSTEOPOROSIS
     Route: 048
     Dates: start: 20030204, end: 20060915
  2. DARVOCET-N 100 [Concomitant]
     Route: 065
  3. FLEXERIL [Concomitant]
     Route: 048
  4. PROVENTIL [Concomitant]
     Route: 065
  5. GLUCOPHAGE [Concomitant]
     Route: 048
  6. PRILOSEC [Concomitant]
     Route: 065
  7. CALCIUM (UNSPECIFIED) AND VITAMIN D (UNSPECIFIED) [Concomitant]
     Route: 048
  8. NORVASC [Concomitant]
     Route: 048
  9. LOTENSIN [Concomitant]
     Route: 048
  10. LIPITOR [Concomitant]
     Route: 048

REACTIONS (2)
  - OPEN WOUND [None]
  - PAIN IN JAW [None]
